FAERS Safety Report 5065222-8 (Version None)
Quarter: 2006Q3

REPORT INFORMATION
  Report Type: 
  Country: None (occurrence: None)
  Receive Date: 20060706
  Receipt Date: 20050712
  Transmission Date: 20061208
  Serious: Yes (Other)
  Sender: FDA-Public Use
  Company Number: 19534

PATIENT
  Sex: Female
  Weight: 101.1521 kg

DRUGS (3)
  1. MIDAZOLAM HCL [Suspect]
     Indication: DRUG INEFFECTIVE
     Dosage: 5-10MG
     Dates: start: 20050711
  2. DEMEROL [Concomitant]
  3. VALIUM [Concomitant]

REACTIONS (1)
  - DRUG INEFFECTIVE [None]
